FAERS Safety Report 8287627-4 (Version None)
Quarter: 2012Q2

REPORT INFORMATION
  Report Type: 
  Country: None (occurrence: None)
  Receive Date: 20120416
  Receipt Date: 20120410
  Transmission Date: 20120825
  Serious: Yes (Hospitalization)
  Sender: FDA-Public Use
  Company Number: PHEH2012US002427

PATIENT
  Age: 48 Year
  Sex: Male

DRUGS (2)
  1. CLOZARIL [Suspect]
     Dosage: UNK UKN, UNK
  2. ANXIOLYTICS [Suspect]
     Dosage: UNK UKN, UNK

REACTIONS (2)
  - ANXIETY [None]
  - WRONG DRUG ADMINISTERED [None]
